FAERS Safety Report 6813753-X (Version None)
Quarter: 2010Q3

REPORT INFORMATION
  Report Type: 
  Country: None (occurrence: None)
  Receive Date: 20100701
  Receipt Date: 20100623
  Transmission Date: 20110219
  Serious: Yes (Hospitalization)
  Sender: FDA-Public Use
  Company Number: US-AMGEN-KDL420292

PATIENT
  Sex: Female

DRUGS (1)
  1. ENBREL [Suspect]
     Indication: RHEUMATOID ARTHRITIS
     Route: 058
     Dates: start: 20070720, end: 20100511

REACTIONS (12)
  - FUNGAL SKIN INFECTION [None]
  - HEADACHE [None]
  - INCISION SITE PAIN [None]
  - INCREASED TENDENCY TO BRUISE [None]
  - INJECTION SITE ERYTHEMA [None]
  - INJECTION SITE PRURITUS [None]
  - NASAL CONGESTION [None]
  - PAIN [None]
  - PRODUCTIVE COUGH [None]
  - SKIN LESION [None]
  - SPUTUM DISCOLOURED [None]
  - VULVAL DISORDER [None]
